FAERS Safety Report 7688671-8 (Version None)
Quarter: 2011Q3

REPORT INFORMATION
  Report Type: 
  Country: None (occurrence: None)
  Receive Date: 20110817
  Receipt Date: 20110727
  Transmission Date: 20111222
  Serious: Yes (Hospitalization)
  Sender: FDA-Public Use
  Company Number: US-GLAXOSMITHKLINE-A0874031A

PATIENT
  Age: 66 Year
  Sex: Male
  Weight: 88.9 kg

DRUGS (10)
  1. IMDUR [Concomitant]
  2. GLYSET [Concomitant]
  3. AVANDAMET [Suspect]
     Indication: DIABETES MELLITUS
     Route: 048
     Dates: start: 20060515
  4. ZOCOR [Concomitant]
  5. TOPROL-XL [Concomitant]
  6. GLUCOTROL [Concomitant]
  7. PEPCID [Concomitant]
  8. VASOTEC [Concomitant]
  9. AVANDIA [Suspect]
     Indication: TYPE 2 DIABETES MELLITUS
     Dosage: 4MG PER DAY
     Route: 048
     Dates: start: 20010101, end: 20070101
  10. ASPIRIN [Concomitant]

REACTIONS (4)
  - ANGINA UNSTABLE [None]
  - CORONARY ARTERY OCCLUSION [None]
  - MYOCARDIAL INFARCTION [None]
  - SICK SINUS SYNDROME [None]
